FAERS Safety Report 7677742-8 (Version None)
Quarter: 2011Q3

REPORT INFORMATION
  Report Type: 
  Country: None (occurrence: None)
  Receive Date: 20110811
  Receipt Date: 20110808
  Transmission Date: 20111222
  Serious: Yes (Other)
  Sender: FDA-Public Use
  Company Number: US-PFIZER INC-2011181911

PATIENT
  Sex: Female

DRUGS (1)
  1. LYRICA [Suspect]
     Dosage: UNK

REACTIONS (7)
  - EYE DISORDER [None]
  - DIZZINESS [None]
  - VIITH NERVE PARALYSIS [None]
  - HERPES ZOSTER [None]
  - SWOLLEN TONGUE [None]
  - AGEUSIA [None]
  - DYSGEUSIA [None]
